FAERS Safety Report 9515650 (Version 1)
Quarter: 2013Q3

REPORT INFORMATION
  Report Type: Spontaneous
  Country: US (occurrence: US)
  Receive Date: 20130911
  Receipt Date: 20130911
  Transmission Date: 20140515
  Serious: Yes (Hospitalization)
  Sender: FDA-Public Use
  Company Number: US-BAYER-2013-107301

PATIENT
  Age: 29 Year
  Sex: Female

DRUGS (4)
  1. YASMIN [Suspect]
     Indication: CONTRACEPTION
  2. FLEXERIL [Concomitant]
  3. VOLTAREN [Concomitant]
  4. ACCUTANE [Concomitant]

REACTIONS (1)
  - Pulmonary embolism [Recovered/Resolved]
